FAERS Safety Report 9922364 (Version 2)
Quarter: 2014Q1

REPORT INFORMATION
  Report Type: Spontaneous
  Country: US (occurrence: US)
  Receive Date: 20140225
  Receipt Date: 20140318
  Transmission Date: 20141002
  Serious: No
  Sender: FDA-Public Use
  Company Number: US-009507513-1402USA011842

PATIENT
  Sex: Female
  Weight: 52.15 kg

DRUGS (1)
  1. OXYTROL FOR WOMEN [Suspect]
     Indication: PRODUCT USED FOR UNKNOWN INDICATION
     Dosage: UNK, UNKNOWN
     Route: 062
     Dates: end: 2014

REACTIONS (4)
  - Rash [Recovered/Resolved]
  - Erythema [Recovered/Resolved]
  - Incorrect drug administration duration [Unknown]
  - Drug ineffective [Unknown]
